FAERS Safety Report 14882344 (Version 2)
Quarter: 2018Q2

REPORT INFORMATION
  Report Type: Spontaneous
  Country: US (occurrence: US)
  Receive Date: 20180511
  Receipt Date: 20180522
  Transmission Date: 20180711
  Serious: Yes (Hospitalization, Other)
  Sender: FDA-Public Use
  Company Number: US-INDIVIOR LIMITED-INDV-110842-2018

PATIENT

DRUGS (1)
  1. SUBOXONE [Suspect]
     Active Substance: BUPRENORPHINE HYDROCHLORIDE\NALOXONE HYDROCHLORIDE
     Indication: DRUG DEPENDENCE
     Dosage: UNK
     Route: 064

REACTIONS (12)
  - Discomfort [Unknown]
  - Drug withdrawal syndrome neonatal [Unknown]
  - Screaming [Unknown]
  - Irritability [Unknown]
  - Foetal exposure during pregnancy [Recovered/Resolved]
  - Abnormal behaviour [Unknown]
  - Diarrhoea neonatal [Unknown]
  - Body temperature increased [Unknown]
  - Insomnia [Unknown]
  - Speech disorder developmental [Recovered/Resolved]
  - Crying [Unknown]
  - Agitation neonatal [Unknown]

NARRATIVE: CASE EVENT DATE: 2014
